FAERS Safety Report 20089580 (Version 1)
Quarter: 2021Q4

REPORT INFORMATION
  Report Type: Other
  Country: US (occurrence: None)
  Receive Date: 20211119
  Receipt Date: 20211119
  Transmission Date: 20220303
  Serious: Yes (Other)
  Sender: FDA-Public Use
  Company Number: US-ROCHE-2954937

PATIENT
  Sex: Female

DRUGS (6)
  1. XELODA [Suspect]
     Active Substance: CAPECITABINE
     Indication: Rectosigmoid cancer
     Dosage: TAKE 2 TABLET(S) BY MOUTH EVERY 12 HOURS WITH FOOD FOR 7 DAYS?FOLLOWED BY 7 DAY BREAK, REPEAT EVERY
     Route: 048
  2. ZINC [Concomitant]
     Active Substance: ZINC
  3. TUMS [Concomitant]
     Active Substance: CALCIUM CARBONATE
  4. LOPERAMIDE [Concomitant]
     Active Substance: LOPERAMIDE
  5. VITAMIN C [Concomitant]
     Active Substance: ASCORBIC ACID
  6. CHOLECALCIFEROL [Concomitant]
     Active Substance: CHOLECALCIFEROL

REACTIONS (1)
  - Colon cancer metastatic [Unknown]
